FAERS Safety Report 4336205-8 (Version None)
Quarter: 2004Q2

REPORT INFORMATION
  Report Type: 
  Country: None (occurrence: None)
  Receive Date: 20040406
  Receipt Date: 19971106
  Transmission Date: 20050107
  Serious: Yes (Death, Life-Threatening, Hospitalization)
  Sender: FDA-Public Use
  Company Number: WAES 97111148

PATIENT
  Age: 1 Day
  Sex: Male

DRUGS (9)
  1. INDOCIN I.V. [Suspect]
     Indication: PATENT DUCTUS ARTERIOSUS
     Dosage: 0.2 MG/KG/DAILY IV; 0.1 MG/KG/DAILY
     Route: 042
     Dates: start: 19970911, end: 19970911
  2. INDOCIN I.V. [Suspect]
     Indication: PATENT DUCTUS ARTERIOSUS
     Dosage: 0.2 MG/KG/DAILY IV; 0.1 MG/KG/DAILY
     Route: 042
     Dates: start: 19970912, end: 19970912
  3. AMIKACIN [Concomitant]
  4. AMINOPHYLLINE [Concomitant]
  5. AMPICILLIN SODIUM/SULBACTAM SODIUM [Concomitant]
  6. DOBUTAMINE [Concomitant]
  7. DOPAMINE HCL [Concomitant]
  8. FUROSEMIDE [Concomitant]
  9. HUMAN INSULIN [Concomitant]

REACTIONS (9)
  - ENTERITIS NECROTICANS [None]
  - HAEMATOCHEZIA [None]
  - HEPATIC HAEMORRHAGE [None]
  - HYPERKALAEMIA [None]
  - HYPONATRAEMIA [None]
  - INTESTINAL PERFORATION [None]
  - IRON DEFICIENCY ANAEMIA [None]
  - OPERATIVE HAEMORRHAGE [None]
  - SHOCK HAEMORRHAGIC [None]
